FAERS Safety Report 17787061 (Version 1)
Quarter: 2020Q2

REPORT INFORMATION
  Report Type: Spontaneous
  Country: FR (occurrence: FR)
  Receive Date: 20200514
  Receipt Date: 20200514
  Transmission Date: 20200714
  Serious: Yes (Hospitalization)
  Sender: FDA-Public Use
  Company Number: NVSC2020FR129324

PATIENT
  Age: 28 Year
  Sex: Female
  Weight: 59 kg

DRUGS (5)
  1. VALIUM [Concomitant]
     Active Substance: DIAZEPAM
     Indication: PRODUCT USED FOR UNKNOWN INDICATION
     Route: 065
  2. QUETIAPINE. [Suspect]
     Active Substance: QUETIAPINE
     Indication: DRUG WITHDRAWAL SYNDROME
     Dosage: 600 MG, QD
     Route: 048
     Dates: start: 20200123
  3. TERCIAN [Suspect]
     Active Substance: CYAMEMAZINE
     Indication: DRUG WITHDRAWAL SYNDROME
     Dosage: 3 DF, QD
     Route: 048
     Dates: start: 20200115, end: 20200116
  4. LOXAPAC [Suspect]
     Active Substance: LOXAPINE
     Indication: DRUG WITHDRAWAL SYNDROME
     Dosage: 200 MG, QD
     Route: 048
     Dates: start: 20200116
  5. SUBUTEX [Concomitant]
     Active Substance: BUPRENORPHINE HYDROCHLORIDE
     Indication: PRODUCT USED FOR UNKNOWN INDICATION
     Route: 065

REACTIONS (1)
  - Faecaloma [Recovering/Resolving]

NARRATIVE: CASE EVENT DATE: 20200124
